FAERS Safety Report 8110748-3 (Version None)
Quarter: 2012Q1

REPORT INFORMATION
  Report Type: 
  Country: None (occurrence: None)
  Receive Date: 20120203
  Receipt Date: 20120124
  Transmission Date: 20120608
  Serious: Yes (Other)
  Sender: FDA-Public Use
  Company Number: JP-JNJFOC-20120101931

PATIENT
  Age: 4 Year
  Sex: Male

DRUGS (1)
  1. REMICADE [Suspect]
     Indication: KAWASAKI'S DISEASE
     Route: 042

REACTIONS (1)
  - ARTHRITIS [None]
